FAERS Safety Report 12093731 (Version 1)
Quarter: 2016Q1

REPORT INFORMATION
  Report Type: Spontaneous
  Country: CA (occurrence: CA)
  Receive Date: 20160219
  Receipt Date: 20160219
  Transmission Date: 20160526
  Serious: Yes (Disabling)
  Sender: FDA-Public Use
  Company Number: CA-PFIZER INC-2016087743

PATIENT
  Age: 77 Year
  Sex: Male
  Weight: 85 kg

DRUGS (3)
  1. DIOVAN [Concomitant]
     Active Substance: VALSARTAN
  2. LIPITOR [Suspect]
     Active Substance: ATORVASTATIN CALCIUM
     Indication: BLOOD CHOLESTEROL INCREASED
  3. LIPITOR [Suspect]
     Active Substance: ATORVASTATIN CALCIUM
     Indication: ISCHAEMIC HEART DISEASE PROPHYLAXIS
     Dosage: 10 MG, 1X/DAY
     Route: 065

REACTIONS (14)
  - Eye disorder [Recovering/Resolving]
  - Myalgia [Recovering/Resolving]
  - Pain in extremity [Recovering/Resolving]
  - Body temperature decreased [Recovering/Resolving]
  - Sleep disorder due to general medical condition, insomnia type [Recovering/Resolving]
  - Back pain [Recovering/Resolving]
  - Groin pain [Recovering/Resolving]
  - Pollakiuria [Recovering/Resolving]
  - Muscular weakness [Recovering/Resolving]
  - Arthralgia [Recovering/Resolving]
  - Balance disorder [Recovering/Resolving]
  - Piriformis syndrome [Recovering/Resolving]
  - Glaucoma [Recovering/Resolving]
  - Weight increased [Recovering/Resolving]
